FAERS Safety Report 21848832 (Version 6)
Quarter: 2023Q4

REPORT INFORMATION
  Report Type: Report from Study
  Country: US (occurrence: US)
  Receive Date: 20230111
  Receipt Date: 20231117
  Transmission Date: 20240110
  Serious: Yes (Other)
  Sender: FDA-Public Use
  Company Number: US-HORIZON THERAPEUTICS-HZN-2023-000121

PATIENT

DRUGS (4)
  1. TEPEZZA [Suspect]
     Active Substance: TEPROTUMUMAB-TRBW
     Indication: Endocrine ophthalmopathy
     Dosage: FIRST INFUSION
     Route: 042
     Dates: start: 20220810
  2. TEPEZZA [Suspect]
     Active Substance: TEPROTUMUMAB-TRBW
     Dosage: 5TH INFUSION
     Route: 042
     Dates: start: 202301
  3. TEPEZZA [Suspect]
     Active Substance: TEPROTUMUMAB-TRBW
     Dosage: 7TH INFUSION
     Route: 042
     Dates: start: 2023
  4. TEPEZZA [Suspect]
     Active Substance: TEPROTUMUMAB-TRBW
     Dosage: 8TH INFUSION
     Route: 042
     Dates: start: 20230503

REACTIONS (10)
  - Diverticulitis [Unknown]
  - Inflammatory bowel disease [Unknown]
  - Abdominal pain upper [Unknown]
  - COVID-19 [Unknown]
  - Dry eye [Not Recovered/Not Resolved]
  - Intentional product use issue [Unknown]
  - Eye disorder [Unknown]
  - Smoke sensitivity [Unknown]
  - Multiple allergies [Not Recovered/Not Resolved]
  - Pharyngitis streptococcal [Not Recovered/Not Resolved]

NARRATIVE: CASE EVENT DATE: 20221001
